FAERS Safety Report 9023706 (Version 1)
Quarter: 2013Q1

REPORT INFORMATION
  Report Type: Spontaneous
  Country: US (occurrence: US)
  Receive Date: 20130121
  Receipt Date: 20130121
  Transmission Date: 20140127
  Serious: No
  Sender: FDA-Public Use
  Company Number: US-009507513-1301USA009468

PATIENT
  Sex: Male

DRUGS (4)
  1. CLARITIN [Suspect]
     Indication: DRY THROAT
     Dosage: 10 MG, BID
     Route: 048
     Dates: start: 201301
  2. CLARITIN [Suspect]
     Indication: RHINORRHOEA
  3. CLARITIN [Suspect]
     Indication: SNEEZING
  4. CLARITIN [Suspect]
     Indication: COUGH

REACTIONS (1)
  - Overdose [Unknown]
